FAERS Safety Report 11646881 (Version 2)
Quarter: 2016Q2

REPORT INFORMATION
  Report Type: Spontaneous
  Country: US (occurrence: US)
  Receive Date: 20151020
  Receipt Date: 20160429
  Transmission Date: 20160815
  Serious: No
  Sender: FDA-Public Use
  Company Number: US-ROCHE-1615317

PATIENT
  Sex: Male
  Weight: 86.26 kg

DRUGS (2)
  1. ESBRIET [Suspect]
     Active Substance: PIRFENIDONE
     Indication: IDIOPATHIC PULMONARY FIBROSIS
     Dosage: 267MG CAPSULE, 3 CAPS, 3X QD
     Route: 048
     Dates: start: 20150527
  2. ESBRIET [Suspect]
     Active Substance: PIRFENIDONE
     Dosage: 2 CAPSULES 3 TIMES A DAY
     Route: 048

REACTIONS (5)
  - Oedema peripheral [Unknown]
  - Dizziness [Unknown]
  - Peripheral swelling [Unknown]
  - Headache [Unknown]
  - Nausea [Unknown]
